FAERS Safety Report 5461108-5 (Version None)
Quarter: 2007Q3

REPORT INFORMATION
  Report Type: 
  Country: None (occurrence: None)
  Receive Date: 20070920
  Receipt Date: 20070917
  Transmission Date: 20080115
  Serious: Yes (Life-Threatening, Other)
  Sender: FDA-Public Use
  Company Number: PHBS2007BR15290

PATIENT
  Age: 34 Year
  Sex: Female
  Weight: 56 kg

DRUGS (1)
  1. PARLODEL [Suspect]
     Indication: LACTATION DISORDER
     Dosage: 2.5 MG, QD
     Route: 048
     Dates: start: 20070915, end: 20070915

REACTIONS (16)
  - ABDOMINAL PAIN UPPER [None]
  - BLINDNESS [None]
  - BLOOD PRESSURE DECREASED [None]
  - DAYDREAMING [None]
  - FEELING ABNORMAL [None]
  - FEELING OF BODY TEMPERATURE CHANGE [None]
  - HEADACHE [None]
  - MUCOSAL DISCOLOURATION [None]
  - MYALGIA [None]
  - OCULAR ICTERUS [None]
  - PALLOR [None]
  - PERIPHERAL COLDNESS [None]
  - RASH [None]
  - RETCHING [None]
  - SKIN DISCOLOURATION [None]
  - VISUAL DISTURBANCE [None]
